FAERS Safety Report 23274348 (Version 1)
Quarter: 2023Q4

REPORT INFORMATION
  Report Type: Spontaneous
  Country: US (occurrence: US)
  Receive Date: 20231208
  Receipt Date: 20231208
  Transmission Date: 20240110
  Serious: No
  Sender: FDA-Public Use
  Company Number: US-AUROBINDO-AUR-APL-2022-050590

PATIENT
  Age: 51 Year
  Sex: Female
  Weight: 63.04 kg

DRUGS (2)
  1. PROGESTERONE [Suspect]
     Active Substance: PROGESTERONE
     Indication: Hormone therapy
     Dosage: UNK, ONCE A DAY,ONE CAPSULE DAILY AT NIGHT
     Route: 065
     Dates: start: 20221016, end: 20221111
  2. ESTRADIOL [Concomitant]
     Active Substance: ESTRADIOL
     Indication: Product used for unknown indication
     Dosage: UNK
     Route: 065

REACTIONS (3)
  - Paraesthesia [Unknown]
  - Product colour issue [Unknown]
  - Product substitution issue [Unknown]
